FAERS Safety Report 8075506-7 (Version None)
Quarter: 2012Q1

REPORT INFORMATION
  Report Type: 
  Country: None (occurrence: None)
  Receive Date: 20120127
  Receipt Date: 20120105
  Transmission Date: 20120608
  Serious: Yes (Other)
  Sender: FDA-Public Use
  Company Number: US-BAYER-2012-007193

PATIENT
  Sex: Male

DRUGS (2)
  1. AVELOX [Suspect]
     Indication: PNEUMONIA
     Dosage: UNK
     Dates: start: 20091201, end: 20100201
  2. PREDNISONE TAB [Suspect]
     Indication: PNEUMONIA
     Dosage: UNK
     Dates: start: 20091201, end: 20100201

REACTIONS (6)
  - ARTHRALGIA [None]
  - MUSCULOSKELETAL PAIN [None]
  - ARTHRITIS [None]
  - BACK PAIN [None]
  - NERVE INJURY [None]
  - PAIN IN EXTREMITY [None]
